FAERS Safety Report 9556341 (Version 1)
Quarter: 2013Q3

REPORT INFORMATION
  Report Type: Spontaneous
  Country: CN (occurrence: CN)
  Receive Date: 20130926
  Receipt Date: 20130926
  Transmission Date: 20140515
  Serious: Yes (Hospitalization, Other)
  Sender: FDA-Public Use
  Company Number: CN-ROXANE LABORATORIES, INC.-2013-RO-01561RO

PATIENT
  Age: 39 Year
  Sex: Male

DRUGS (2)
  1. PREDNISONE [Suspect]
     Indication: RENAL TRANSPLANT
  2. MYCOPHENOLATE MOFETIL [Suspect]
     Indication: RENAL TRANSPLANT

REACTIONS (4)
  - Rectal adenocarcinoma [Not Recovered/Not Resolved]
  - Complications of transplanted kidney [Unknown]
  - Disease recurrence [Unknown]
  - Metastases to liver [Unknown]
